FAERS Safety Report 14373901 (Version 1)
Quarter: 2018Q1

REPORT INFORMATION
  Report Type: Other
  Country: FR (occurrence: FR)
  Receive Date: 20180111
  Receipt Date: 20180111
  Transmission Date: 20180509
  Serious: Yes (Hospitalization, Other)
  Sender: FDA-Public Use
  Company Number: FR-MACLEODS PHARMACEUTICALS US LTD-MAC2017008203

PATIENT

DRUGS (3)
  1. ECONAZOLE [Suspect]
     Active Substance: ECONAZOLE
     Indication: INTERTRIGO
     Dosage: UNK, (CREAM IN CUTANEOUS APPLICATION)
     Route: 003
     Dates: start: 20171011, end: 20171211
  2. LASILIX FAIBLE 20 MG, COMPRESS [Suspect]
     Active Substance: FUROSEMIDE
     Indication: PRODUCT USED FOR UNKNOWN INDICATION
     Dosage: 1 DF, QD, (20MG / DAY THEN INCREASE THE 06/10 TO 40MG / DAY THEN INCREASE THE 13/10 TO 80MG / DAY)
     Route: 048
     Dates: start: 20170729, end: 20171005
  3. PANTOPRAZOLE [Suspect]
     Active Substance: PANTOPRAZOLE
     Indication: GASTRIC ULCER
     Dosage: 40 MG, QD
     Route: 065
     Dates: start: 201709, end: 20171215

REACTIONS (2)
  - Toxic skin eruption [Recovering/Resolving]
  - Rash pruritic [Recovering/Resolving]

NARRATIVE: CASE EVENT DATE: 20171023
